FAERS Safety Report 16133984 (Version 1)
Quarter: 2019Q1

REPORT INFORMATION
  Report Type: Spontaneous
  Country: BG (occurrence: BG)
  Receive Date: 20190329
  Receipt Date: 20190329
  Transmission Date: 20190418
  Serious: Yes (Hospitalization, Other)
  Sender: FDA-Public Use
  Company Number: BG-BAYER-2019-056986

PATIENT
  Age: 72 Year
  Sex: Male

DRUGS (7)
  1. ASPIRIN PROTECT 100 MG [Suspect]
     Active Substance: ASPIRIN
     Dosage: UNK
  2. TORASEMIDE [Concomitant]
     Active Substance: TORSEMIDE
     Dosage: 10 MG, UNK
  3. PERINDOPRIL [Concomitant]
     Active Substance: PERINDOPRIL
     Dosage: 10 MG, UNK
  4. ROSUVASTATIN. [Concomitant]
     Active Substance: ROSUVASTATIN
     Dosage: 10 MG, UNK
  5. ESOMEPRAZOLE. [Concomitant]
     Active Substance: ESOMEPRAZOLE MAGNESIUM
     Dosage: 20 MG, UNK
  6. BISOPROLOL [Concomitant]
     Active Substance: BISOPROLOL
     Dosage: 5 MG, BID
  7. EPLERENONE. [Concomitant]
     Active Substance: EPLERENONE
     Dosage: 25 MG, UNK

REACTIONS (10)
  - Ischaemic stroke [None]
  - Arrhythmia [None]
  - Left atrial dilatation [None]
  - Pulmonary arterial hypertension [None]
  - Mitral valve incompetence [None]
  - Helplessness [None]
  - Tricuspid valve incompetence [None]
  - Cerebral cyst [None]
  - Dyskinesia [None]
  - Aphasia [None]

NARRATIVE: CASE EVENT DATE: 20190120
